FAERS Safety Report 4469104-1 (Version None)
Quarter: 2004Q4

REPORT INFORMATION
  Report Type: 
  Country: None (occurrence: None)
  Receive Date: 20041005
  Receipt Date: 20040929
  Transmission Date: 20050328
  Serious: Yes (Other)
  Sender: FDA-Public Use
  Company Number: 805#1#2004-00024

PATIENT
  Age: 2 Month
  Sex: Female

DRUGS (2)
  1. ALPROSTADIL [Suspect]
     Indication: HEART DISEASE CONGENITAL
     Route: 041
     Dates: start: 20040724
  2. ALPROSTADIL [Suspect]
     Route: 041
     Dates: start: 20040904, end: 20040904

REACTIONS (6)
  - ALOPECIA [None]
  - C-REACTIVE PROTEIN INCREASED [None]
  - HYPERTRICHOSIS [None]
  - HYPOXIA [None]
  - OEDEMA [None]
  - PERIOSTITIS HYPERTROPHIC [None]
